FAERS Safety Report 6129378-8 (Version None)
Quarter: 2009Q1

REPORT INFORMATION
  Report Type: 
  Country: None (occurrence: None)
  Receive Date: 20090324
  Receipt Date: 20090310
  Transmission Date: 20090719
  Serious: Yes (Other)
  Sender: FDA-Public Use
  Company Number: US-PFIZER INC-2006062742

PATIENT
  Sex: Female
  Weight: 60 kg

DRUGS (11)
  1. PROVERA [Suspect]
     Indication: HORMONE REPLACEMENT THERAPY
     Dosage: 5 MG, 1X/DAY
     Route: 048
     Dates: start: 19940914, end: 19960520
  2. MEDROXYPROGESTERONE [Suspect]
     Indication: HORMONE REPLACEMENT THERAPY
     Dosage: 5 MG, 1X/DAY
     Route: 048
     Dates: start: 19970831, end: 19980924
  3. PREMARIN [Suspect]
     Indication: HORMONE REPLACEMENT THERAPY
     Dosage: 0.625 MG, 1X/DAY
     Route: 065
     Dates: start: 19940914, end: 19981226
  4. PREMARIN [Suspect]
     Dosage: 0.625 MG, 1X/DAY
     Dates: start: 20021222, end: 20040601
  5. PREMPRO [Suspect]
     Indication: HORMONE REPLACEMENT THERAPY
     Dosage: UNK
     Route: 065
     Dates: start: 19981226, end: 20021222
  6. CYCRIN [Suspect]
     Indication: HORMONE REPLACEMENT THERAPY
     Dosage: 5 MG, 1X/DAY
     Route: 065
     Dates: start: 19960520, end: 19970831
  7. CYCRIN [Suspect]
     Dosage: 5 MG, 1X/DAY
     Dates: start: 19980924, end: 19981226
  8. PREMARIN [Suspect]
     Indication: HORMONE REPLACEMENT THERAPY
     Dosage: UNK
     Dates: start: 19960617
  9. ATENOLOL [Concomitant]
     Indication: ARRHYTHMIA
     Dosage: UNK
     Dates: start: 19990101
  10. ACETYLSALICYLIC ACID [Concomitant]
     Indication: ANTICOAGULANT THERAPY
     Dosage: UNK
     Dates: start: 20020101
  11. PROPRANOLOL [Concomitant]
     Indication: ARRHYTHMIA
     Dosage: UNK
     Dates: start: 19950101, end: 20050101

REACTIONS (1)
  - BREAST CANCER FEMALE [None]
